FAERS Safety Report 14243787 (Version 1)
Quarter: 2017Q4

REPORT INFORMATION
  Report Type: Spontaneous
  Country: US (occurrence: US)
  Receive Date: 20171201
  Receipt Date: 20171201
  Transmission Date: 20180321
  Serious: Yes (Disabling, Other)
  Sender: FDA-Public Use
  Company Number: None

PATIENT
  Sex: Female
  Weight: 72 kg

DRUGS (4)
  1. VITAMIN D [Concomitant]
     Active Substance: CHOLECALCIFEROL
  2. VITAMIN C [Concomitant]
     Active Substance: ASCORBIC ACID
  3. PRAVASTATIN. [Suspect]
     Active Substance: PRAVASTATIN
     Indication: BLOOD CHOLESTEROL
     Dosage: ?          QUANTITY:1 TABLET(S);?
     Route: 048
  4. CRESTOR [Suspect]
     Active Substance: ROSUVASTATIN CALCIUM
     Indication: BLOOD CHOLESTEROL
     Dosage: ?          QUANTITY:1 TABLET(S);?
     Route: 048

REACTIONS (3)
  - Pancreatitis [None]
  - Therapy cessation [None]
  - Gastric disorder [None]

NARRATIVE: CASE EVENT DATE: 20161201
